FAERS Safety Report 6058619-0 (Version None)
Quarter: 2009Q1

REPORT INFORMATION
  Report Type: 
  Country: None (occurrence: None)
  Receive Date: 20090130
  Receipt Date: 20090120
  Transmission Date: 20090719
  Serious: Yes (Other)
  Sender: FDA-Public Use
  Company Number: CN-PFIZER INC-2009160290

PATIENT

DRUGS (2)
  1. SULPERAZON [Suspect]
     Indication: UPPER RESPIRATORY TRACT INFECTION
     Route: 042
  2. CLINDAMYCIN PHOSPHATE [Concomitant]
     Route: 042

REACTIONS (1)
  - THROMBOCYTOPENIC PURPURA [None]
